FAERS Safety Report 17192614 (Version 1)
Quarter: 2019Q4

REPORT INFORMATION
  Report Type: Spontaneous
  Country: CA (occurrence: CA)
  Receive Date: 20191223
  Receipt Date: 20191223
  Transmission Date: 20200122
  Serious: Yes (Other)
  Sender: FDA-Public Use
  Company Number: CA-TEVA-2019-CA-1155435

PATIENT
  Age: 23 Year
  Sex: Female
  Weight: 64 kg

DRUGS (1)
  1. ETHINYLESTRADIOL W/LEVONORGESTREL [Suspect]
     Active Substance: ETHINYL ESTRADIOL\LEVONORGESTREL
     Indication: CONTRACEPTION
     Dosage: 1 DOSAGE FORMS DAILY;
     Route: 048

REACTIONS (5)
  - Product substitution issue [Unknown]
  - Headache [Unknown]
  - Metrorrhagia [Unknown]
  - Nausea [Unknown]
  - Anxiety [Unknown]
